FAERS Safety Report 8299753-4 (Version None)
Quarter: 2012Q2

REPORT INFORMATION
  Report Type: 
  Country: None (occurrence: None)
  Receive Date: 20120419
  Receipt Date: 20120417
  Transmission Date: 20120825
  Serious: Yes (Hospitalization)
  Sender: FDA-Public Use
  Company Number: GB-MERCK-1204GBR00021

PATIENT
  Age: 65 Year
  Sex: Female

DRUGS (9)
  1. ACETAMINOPHEN [Concomitant]
     Route: 065
  2. DICLOFENAC [Suspect]
     Route: 048
     Dates: end: 20120308
  3. CITALOPRAM [Concomitant]
     Route: 065
  4. OMEPRAZOLE [Concomitant]
     Route: 065
  5. PREGABALIN [Concomitant]
     Route: 065
  6. ALBUTEROL [Concomitant]
     Route: 065
  7. METOLAZONE [Suspect]
     Route: 048
     Dates: end: 20120308
  8. MORPHINE SULFATE [Suspect]
     Indication: PAIN
     Route: 048
     Dates: start: 20120304, end: 20120308
  9. COZAAR [Suspect]
     Route: 048
     Dates: end: 20120308

REACTIONS (5)
  - SOMNOLENCE [None]
  - TOXICITY TO VARIOUS AGENTS [None]
  - DEHYDRATION [None]
  - RENAL FAILURE ACUTE [None]
  - CONFUSIONAL STATE [None]
